FAERS Safety Report 9511276 (Version 1)
Quarter: 2013Q1

REPORT INFORMATION
  Report Type: Spontaneous
  Country: US (occurrence: None)
  Receive Date: 20130305
  Receipt Date: 20130305
  Transmission Date: 20140127
  Serious: Yes (Other)
  Sender: FDA-Public Use
  Company Number: 163-21880-12113474

PATIENT
  Age: 74 Year
  Sex: Female

DRUGS (7)
  1. REVLIMID (LENALIDOMIDE) (25 MILLIGRAM, CAPSULES) [Suspect]
     Indication: PLASMA CELL MYELOMA
     Dosage: 25 MG, 21 IN 21 D, PO
     Dates: start: 20120801
  2. NATEGLINIDE(NATEGLINIDE)(UNKNOWN) [Concomitant]
  3. CALCIUM + D(CALCIUM + VIT D)(UNKNOWN) [Concomitant]
  4. FISH OIL(FISH OIL)(UNKNOWN) [Concomitant]
  5. VITAMIN D(ERGOCALCIFEROL)(UNKNOWN) [Concomitant]
  6. MULTIVITAMINS(MULTIVITAMINS)(UNKNOWN) [Concomitant]
  7. PREDNISONE(PREDNISONE)(UNKNOWN) [Concomitant]

REACTIONS (1)
  - Drug dose omission [None]
